FAERS Safety Report 5852671-0 (Version None)
Quarter: 2008Q3

REPORT INFORMATION
  Report Type: 
  Country: None (occurrence: None)
  Receive Date: 20080820
  Receipt Date: 20080811
  Transmission Date: 20090109
  Serious: Yes (Other)
  Sender: FDA-Public Use
  Company Number: 08H-028-0314732-00

PATIENT
  Age: 32 Year
  Sex: Male

DRUGS (5)
  1. HEPARIN SODIUM INJECTION [Suspect]
     Indication: ANTICOAGULANT THERAPY
     Dosage: INTRAVENOUS INFUSION
  2. HEPARIN SODIUM INJECTION [Suspect]
     Indication: ANTICOAGULANT THERAPY
     Dosage: 5600 UNIT, ONCE, INTRAVENOUS BOLUS
     Route: 040
  3. NITROGLYCERIN [Concomitant]
  4. FENOFIBRATE [Concomitant]
  5. SALMON OIL (FISH OIL) [Concomitant]

REACTIONS (2)
  - BLOOD CHOLESTEROL INCREASED [None]
  - HYPERTRIGLYCERIDAEMIA [None]
